FAERS Safety Report 10785748 (Version 5)
Quarter: 2015Q3

REPORT INFORMATION
  Report Type: Report from Study
  Country: US (occurrence: US)
  Receive Date: 20150211
  Receipt Date: 20150902
  Transmission Date: 20151125
  Serious: Yes (Death, Hospitalization)
  Sender: FDA-Public Use
  Company Number: US-ACTELION-A-NJ2014-98452

PATIENT
  Age: 62 Year
  Sex: Female

DRUGS (19)
  1. SILDENAFIL. [Concomitant]
     Active Substance: SILDENAFIL
  2. METOPROLOL [Concomitant]
     Active Substance: METOPROLOL
  3. REMODULIN [Concomitant]
     Active Substance: TREPROSTINIL
  4. FLUOXETINE [Concomitant]
     Active Substance: FLUOXETINE\FLUOXETINE HYDROCHLORIDE
  5. COUMADIN [Concomitant]
     Active Substance: WARFARIN SODIUM
  6. FLOLAN [Concomitant]
     Active Substance: EPOPROSTENOL SODIUM
  7. PLAVIX [Concomitant]
     Active Substance: CLOPIDOGREL BISULFATE
  8. TRACLEER [Suspect]
     Active Substance: BOSENTAN
     Indication: PULMONARY ARTERIAL HYPERTENSION
     Dosage: 125 MG, BID
     Route: 048
     Dates: start: 2010, end: 20150802
  9. AMIODARONE [Concomitant]
     Active Substance: AMIODARONE
  10. MIRAPEX [Concomitant]
     Active Substance: PRAMIPEXOLE DIHYDROCHLORIDE
  11. IFEREX [Concomitant]
  12. HUMALOG [Concomitant]
     Active Substance: INSULIN LISPRO
  13. SIMVASTIN [Concomitant]
     Active Substance: SIMVASTATIN
  14. LANTUS [Concomitant]
     Active Substance: INSULIN GLARGINE
  15. ASA [Concomitant]
     Active Substance: ASPIRIN
  16. INSULIN DETEMIR [Concomitant]
     Active Substance: INSULIN DETEMIR
  17. NEXIUM [Concomitant]
     Active Substance: ESOMEPRAZOLE MAGNESIUM
  18. DOCUSATE [Concomitant]
     Active Substance: DOCUSATE
  19. EPOETIN ALFA [Concomitant]
     Active Substance: ERYTHROPOIETIN

REACTIONS (14)
  - Renal failure [Unknown]
  - Oedema [Unknown]
  - Pulmonary arterial hypertension [Unknown]
  - Coronary artery stenosis [Recovering/Resolving]
  - Cardiac disorder [Unknown]
  - Hypotension [Unknown]
  - Blood glucose increased [Recovering/Resolving]
  - Blood glucose decreased [Unknown]
  - Chest pain [Recovering/Resolving]
  - Syncope [Unknown]
  - Fluid overload [Unknown]
  - Renal disorder [Unknown]
  - Cardiac arrest [Fatal]
  - Dizziness [Unknown]

NARRATIVE: CASE EVENT DATE: 20141130
